FAERS Safety Report 6811876-2 (Version None)
Quarter: 2010Q3

REPORT INFORMATION
  Report Type: 
  Country: None (occurrence: None)
  Receive Date: 20100701
  Receipt Date: 20100623
  Transmission Date: 20110219
  Serious: Yes (Hospitalization, Other)
  Sender: FDA-Public Use
  Company Number: US-BAYER-201026247NA

PATIENT
  Sex: Female

DRUGS (4)
  1. YAZ [Suspect]
     Indication: PRODUCT USED FOR UNKNOWN INDICATION
     Route: 048
     Dates: start: 20061001, end: 20080101
  2. YAZ [Suspect]
     Route: 048
     Dates: start: 20080101, end: 20090801
  3. YASMIN [Suspect]
     Indication: PRODUCT USED FOR UNKNOWN INDICATION
     Route: 048
     Dates: start: 20061001, end: 20080101
  4. YASMIN [Suspect]
     Route: 048
     Dates: start: 20080101, end: 20090801

REACTIONS (2)
  - APPENDICITIS [None]
  - GALLBLADDER DISORDER [None]
